FAERS Safety Report 4421262-0 (Version None)
Quarter: 2004Q3

REPORT INFORMATION
  Report Type: 
  Country: None (occurrence: None)
  Receive Date: 20040707
  Receipt Date: 20040315
  Transmission Date: 20050211
  Serious: No
  Sender: FDA-Public Use
  Company Number: SU-2004-002223

PATIENT
  Age: 59 Year
  Sex: Female

DRUGS (11)
  1. BENICAR HCT [Suspect]
     Indication: HYPERTENSION
     Dosage: 20.125 MG QD PO
     Route: 048
     Dates: start: 20031009, end: 20040311
  2. TENORMIN [Concomitant]
  3. WELCHOL [Concomitant]
  4. ULTRACET [Concomitant]
  5. AMBIEN [Concomitant]
  6. BENICAR HCT [Suspect]
     Indication: HYPERTENSION
     Dosage: 20.125 MG QD PO
     Route: 048
     Dates: start: 20031009, end: 20040311
  7. TENORMIN [Concomitant]
  8. WELCHOL [Concomitant]
  9. ULTRACET [Concomitant]
  10. AMBIEN [Concomitant]
  11. XANAX [Concomitant]

REACTIONS (1)
  - BLOOD UREA INCREASED [None]
